FAERS Safety Report 17877988 (Version 1)
Quarter: 2020Q2

REPORT INFORMATION
  Report Type: Spontaneous
  Country: PT (occurrence: PT)
  Receive Date: 20200609
  Receipt Date: 20200609
  Transmission Date: 20200714
  Serious: Yes (Other)
  Sender: FDA-Public Use
  Company Number: PT-TEVA-2020-PT-1245782

PATIENT
  Age: 67 Year
  Sex: Male

DRUGS (3)
  1. BICALUTAMIDA TEVA [Suspect]
     Active Substance: BICALUTAMIDE
     Indication: PROSTATE CANCER
     Dosage: 50 MG
     Route: 048
  2. DECAPEPTYL LP [Concomitant]
     Dosage: 1 DOSAGE FORM
     Route: 030
  3. SILODOSIN. [Concomitant]
     Active Substance: SILODOSIN
     Route: 048

REACTIONS (3)
  - Dysuria [Recovered/Resolved]
  - Product substitution issue [Recovered/Resolved]
  - Urethral haemorrhage [Recovered/Resolved]
